FAERS Safety Report 18023592 (Version 1)
Quarter: 2020Q3

REPORT INFORMATION
  Report Type: Spontaneous
  Country: CN (occurrence: CN)
  Receive Date: 20200715
  Receipt Date: 20200715
  Transmission Date: 20201103
  Serious: Yes (Hospitalization)
  Sender: FDA-Public Use
  Company Number: CN-ABBVIE-20K-035-3480149-00

PATIENT
  Age: 45 Year
  Sex: Female
  Weight: 55 kg

DRUGS (3)
  1. ALUVIA [Suspect]
     Active Substance: LOPINAVIR\RITONAVIR
     Indication: COVID-19 PNEUMONIA
     Route: 048
     Dates: start: 20200305, end: 20200319
  2. ARBIDOL HYDROCHLORIDE [Concomitant]
     Indication: COVID-19 PNEUMONIA
     Route: 048
     Dates: start: 20200305, end: 20200313
  3. RECOMBINANT HUMAN INTERFERON ALFA 2A [Concomitant]
     Indication: COVID-19 PNEUMONIA
     Route: 050
     Dates: start: 20200305, end: 20200313

REACTIONS (3)
  - Off label use [Unknown]
  - Hepatic function abnormal [Recovered/Resolved]
  - Lymphopenia [Recovered/Resolved]

NARRATIVE: CASE EVENT DATE: 20200305
